FAERS Safety Report 8592913-4 (Version None)
Quarter: 2012Q3

REPORT INFORMATION
  Report Type: 
  Country: None (occurrence: None)
  Receive Date: 20120814
  Receipt Date: 20120112
  Transmission Date: 20120928
  Serious: Yes (Hospitalization)
  Sender: FDA-Public Use
  Company Number: US-ROCHE-1100587

PATIENT
  Age: 61 Year
  Sex: Male

DRUGS (4)
  1. HEPARIN [Concomitant]
     Dosage: 25000U/500
     Route: 065
  2. LIDOCAINE [Concomitant]
     Route: 065
  3. SODIUM CHLORIDE [Concomitant]
     Route: 065
  4. ACTIVASE [Suspect]
     Indication: ACUTE MYOCARDIAL INFARCTION
     Route: 065

REACTIONS (3)
  - ARRHYTHMIA [None]
  - DYSPNOEA [None]
  - ATRIAL FIBRILLATION [None]
